FAERS Safety Report 9304997 (Version 1)
Quarter: 2013Q2

REPORT INFORMATION
  Report Type: Spontaneous
  Country: NL (occurrence: None)
  Receive Date: 20130520
  Receipt Date: 20130520
  Transmission Date: 20140414
  Serious: Yes (Other)
  Sender: FDA-Public Use
  Company Number: NL-1198196

PATIENT
  Age: 29 Year
  Sex: Male

DRUGS (1)
  1. VEXOL [Suspect]
     Indication: EYE INFLAMMATION
     Route: 047
     Dates: start: 200703, end: 200903

REACTIONS (3)
  - Optic nerve injury [None]
  - Intraocular pressure increased [None]
  - Incorrect drug administration duration [None]
